FAERS Safety Report 9382707 (Version 3)
Quarter: 2013Q3

REPORT INFORMATION
  Report Type: Spontaneous
  Country: IT (occurrence: IT)
  Receive Date: 20130703
  Receipt Date: 20130719
  Transmission Date: 20140515
  Serious: Yes (Death, Life-Threatening, Hospitalization)
  Sender: FDA-Public Use
  Company Number: IT-BRISTOL-MYERS SQUIBB COMPANY-19069665

PATIENT
  Age: 64 Year
  Sex: Female

DRUGS (2)
  1. MITOMYCIN-C [Suspect]
     Indication: ANAL CANCER
     Route: 042
     Dates: start: 20130527, end: 20130527
  2. 5-FLUOROURACIL [Interacting]
     Indication: ANAL CANCER
     Route: 042
     Dates: start: 20130527, end: 20130530

REACTIONS (15)
  - Acute respiratory distress syndrome [Fatal]
  - Stevens-Johnson syndrome [Unknown]
  - Stomatitis [Unknown]
  - Vaginal inflammation [Unknown]
  - Syncope [Unknown]
  - Drug interaction [Unknown]
  - Erythema [Unknown]
  - Thrombocytopenia [Unknown]
  - Leukopenia [Unknown]
  - Anaemia [Unknown]
  - Vomiting [Unknown]
  - Nausea [Unknown]
  - Diarrhoea [Unknown]
  - Hand dermatitis [Unknown]
  - Conjunctivitis [Unknown]
